FAERS Safety Report 11462203 (Version 1)
Quarter: 2015Q3

REPORT INFORMATION
  Report Type: Spontaneous
  Country: US (occurrence: US)
  Receive Date: 20150831
  Receipt Date: 20150831
  Transmission Date: 20151125
  Serious: No
  Sender: FDA-Public Use
  Company Number: US-ELI_LILLY_AND_COMPANY-US201010003438

PATIENT
  Age: 67 Year
  Sex: Female

DRUGS (6)
  1. TURMERIC [Concomitant]
     Active Substance: TURMERIC
  2. CYMBALTA [Suspect]
     Active Substance: DULOXETINE HYDROCHLORIDE
     Indication: FIBROMYALGIA
     Dosage: 60 MG, DAILY (1/D)
     Dates: start: 20100902
  3. NEXIUM /USA/ [Concomitant]
     Dosage: UNK, DAILY (1/D)
  4. METOPROLOL [Concomitant]
     Active Substance: METOPROLOL
     Dosage: 100 D/F, 2/D
  5. ASA [Concomitant]
     Active Substance: ASPIRIN
  6. TRIAMTERENE AND HYDROCHLOROTHIAZIDE [Concomitant]
     Active Substance: HYDROCHLOROTHIAZIDE\TRIAMTERENE
     Dosage: 1 D/F, DAILY (1/D)

REACTIONS (3)
  - Peripheral swelling [Not Recovered/Not Resolved]
  - Haemorrhagic disorder [Unknown]
  - Blood pressure increased [Unknown]

NARRATIVE: CASE EVENT DATE: 20101009
